FAERS Safety Report 7879915-8 (Version None)
Quarter: 2011Q4

REPORT INFORMATION
  Report Type: 
  Country: None (occurrence: None)
  Receive Date: 20111101
  Receipt Date: 20111025
  Transmission Date: 20120403
  Serious: Yes (Hospitalization)
  Sender: FDA-Public Use
  Company Number: US-PFIZER INC-2011261221

PATIENT
  Sex: Female
  Weight: 64.399 kg

DRUGS (11)
  1. BENAZEPRIL [Concomitant]
     Indication: BLOOD PRESSURE ABNORMAL
     Dosage: 10 MG, 2X/DAY
     Route: 048
     Dates: start: 20090101
  2. LYRICA [Suspect]
     Indication: FIBROMYALGIA
     Dosage: UNK
  3. PLAQUENIL [Concomitant]
     Indication: CONNECTIVE TISSUE DISORDER
     Dosage: 200 MG, 2X/DAY
     Route: 048
     Dates: start: 20080101
  4. SAVELLA [Concomitant]
     Indication: FIBROMYALGIA
     Dosage: UNK
     Dates: start: 20100101
  5. SULFASALAZINE [Concomitant]
     Indication: ARTHRITIS
     Dosage: 1000 MG, 2X/DAY
     Route: 048
     Dates: start: 20020101
  6. DYAZIDE [Concomitant]
     Indication: BLOOD PRESSURE ABNORMAL
     Dosage: 1 DOSE, 1 IN 1 DAY
     Route: 048
  7. TRAZODONE [Concomitant]
     Indication: SLEEP DISORDER
     Dosage: 100 MG, 1 IN 1 HOUR OF SLEEP
     Route: 048
     Dates: start: 19960101
  8. CALAN - SLOW RELEASE [Concomitant]
     Indication: BLOOD PRESSURE ABNORMAL
     Dosage: 240 MG, 1X/DAY
     Route: 048
     Dates: start: 20050101
  9. GOLIMUMAB [Suspect]
     Indication: RHEUMATOID ARTHRITIS
     Dosage: 50 MG, MONTHLY
     Route: 058
     Dates: start: 20091001
  10. NAPROXEN [Concomitant]
     Indication: ARTHRITIS
     Dosage: 500 MG, 3X/DAY
     Route: 048
     Dates: start: 19960101
  11. PRAVASTATIN [Concomitant]
     Indication: BLOOD CHOLESTEROL ABNORMAL
     Dosage: 40 MG, 1X/DAY
     Route: 048

REACTIONS (5)
  - DRUG ERUPTION [None]
  - IMPAIRED HEALING [None]
  - BACK DISORDER [None]
  - DEVICE MALFUNCTION [None]
  - DRUG DOSE OMISSION [None]
